FAERS Safety Report 5750591-3 (Version None)
Quarter: 2008Q2

REPORT INFORMATION
  Report Type: 
  Country: None (occurrence: None)
  Receive Date: 20080528
  Receipt Date: 20080526
  Transmission Date: 20081010
  Serious: Yes (Other)
  Sender: FDA-Public Use
  Company Number: JP-RB-001536-08

PATIENT

DRUGS (1)
  1. LEPETAN SUPPOSITORIES [Suspect]
     Indication: DRUG USE FOR UNKNOWN INDICATION
     Dosage: DOSE UNKNOWN
     Route: 054

REACTIONS (1)
  - BLOOD PRESSURE DECREASED [None]
